FAERS Safety Report 26169465 (Version 1)
Quarter: 2025Q4

REPORT INFORMATION
  Report Type: Spontaneous
  Country: US (occurrence: US)
  Receive Date: 20251217
  Receipt Date: 20251217
  Transmission Date: 20260118
  Serious: Yes (Hospitalization, Other)
  Sender: DR REDDYS
  Company Number: US-DRL-USA-USA/2025/12/018971

PATIENT
  Age: 23 Year
  Sex: Female

DRUGS (1)
  1. VASOPRESSIN [Suspect]
     Active Substance: VASOPRESSIN
     Indication: Shock
     Route: 042

REACTIONS (2)
  - Diabetes insipidus [Unknown]
  - Hyponatraemia [Recovered/Resolved]
